FAERS Safety Report 4604134-8 (Version None)
Quarter: 2005Q1

REPORT INFORMATION
  Report Type: 
  Country: None (occurrence: None)
  Receive Date: 20050309
  Receipt Date: 20050309
  Transmission Date: 20050727
  Serious: Yes (Hospitalization, Other)
  Sender: FDA-Public Use
  Company Number: None

PATIENT
  Age: 51 Year
  Sex: Female
  Weight: 136.0791 kg

DRUGS (10)
  1. WARFARIN [Suspect]
     Indication: ATRIAL FIBRILLATION
     Dosage: 5 MG DILY X 7.5 MG WED [CHRONIC]
  2. NAPROSYN [Suspect]
     Indication: BACK PAIN
     Dosage: [CHRONIC]
  3. WARFARIN [Concomitant]
  4. VERAPAMIL [Concomitant]
  5. LANOXIN [Concomitant]
  6. LASIX [Concomitant]
  7. IMODIUM [Concomitant]
  8. ZANTAC [Concomitant]
  9. POTASSIUM CHLORIDE [Concomitant]
  10. NAPROSYN [Concomitant]

REACTIONS (8)
  - ANAEMIA [None]
  - ANAL FISSURE [None]
  - ATRIAL FIBRILLATION [None]
  - DIVERTICULUM INTESTINAL HAEMORRHAGIC [None]
  - DIZZINESS [None]
  - DUODENAL ULCER HAEMORRHAGE [None]
  - HYPOVOLAEMIA [None]
  - INTERNATIONAL NORMALISED RATIO INCREASED [None]
